FAERS Safety Report 11603002 (Version 1)
Quarter: 2015Q4

REPORT INFORMATION
  Report Type: Spontaneous
  Country: US (occurrence: US)
  Receive Date: 20151006
  Receipt Date: 20151006
  Transmission Date: 20160304
  Serious: No
  Sender: FDA-Public Use
  Company Number: US-AMGEN-USASP2015088897

PATIENT
  Age: 55 Year
  Sex: Female
  Weight: 62.86 kg

DRUGS (1)
  1. PROLIA [Suspect]
     Active Substance: DENOSUMAB
     Indication: OSTEOPOROSIS
     Dosage: 60 MG, Q6MO
     Route: 058
     Dates: start: 20150625

REACTIONS (2)
  - Arthralgia [Unknown]
  - Arthropathy [Unknown]

NARRATIVE: CASE EVENT DATE: 2015
